FAERS Safety Report 6366089-8 (Version None)
Quarter: 2009Q3

REPORT INFORMATION
  Report Type: 
  Country: None (occurrence: None)
  Receive Date: 20090920
  Receipt Date: 20081120
  Transmission Date: 20100115
  Serious: No
  Sender: FDA-Public Use
  Company Number: US-BAUSCH-2008BL004892

PATIENT
  Age: 26 Year
  Sex: Male
  Weight: 79 kg

DRUGS (1)
  1. NEOMYCIN AND POLYMXIN B SULFATES AND HYDROCORTISONE [Suspect]
     Route: 047
     Dates: start: 20081119, end: 20081120

REACTIONS (4)
  - EYE IRRITATION [None]
  - EYELID IRRITATION [None]
  - MEDICATION ERROR [None]
  - VISION BLURRED [None]
